FAERS Safety Report 6842298-6 (Version None)
Quarter: 2010Q3

REPORT INFORMATION
  Report Type: 
  Country: None (occurrence: None)
  Receive Date: 20100714
  Receipt Date: 20070723
  Transmission Date: 20110219
  Serious: No
  Sender: FDA-Public Use
  Company Number: US-PFIZER INC-2007062733

PATIENT
  Sex: Female
  Weight: 64.545 kg

DRUGS (4)
  1. CHANTIX [Suspect]
     Indication: SMOKING CESSATION THERAPY
     Dates: start: 20070701
  2. SPIRIVA [Concomitant]
  3. COZAAR [Concomitant]
  4. MULTI-VITAMINS [Concomitant]

REACTIONS (7)
  - CHILLS [None]
  - FEELING DRUNK [None]
  - MALAISE [None]
  - NASOPHARYNGITIS [None]
  - NAUSEA [None]
  - VERTIGO [None]
  - VISION BLURRED [None]
